FAERS Safety Report 7268984-4 (Version None)
Quarter: 2011Q1

REPORT INFORMATION
  Report Type: 
  Country: None (occurrence: None)
  Receive Date: 20110201
  Receipt Date: 20110118
  Transmission Date: 20110831
  Serious: Yes (Hospitalization, Other)
  Sender: FDA-Public Use
  Company Number: US-ELI_LILLY_AND_COMPANY-US201008002119

PATIENT
  Sex: Female
  Weight: 68.481 kg

DRUGS (11)
  1. LEVOTHYROXINE SODIUM [Concomitant]
     Indication: THYROID DISORDER
  2. VITAMIN D [Concomitant]
     Dosage: 2000 U, UNK
  3. FORTEO [Suspect]
     Indication: OSTEOPOROSIS
     Dosage: 20 UG, DAILY (1/D)
     Route: 058
     Dates: start: 20100813
  4. FORTEO [Suspect]
     Dosage: 20 UG, DAILY (1/D)
     Route: 058
  5. ASPIRIN [Concomitant]
     Dosage: 81 MG, UNK
  6. EVISTA [Suspect]
     Indication: OSTEOPOROSIS
     Dosage: 60 MG, DAILY (1/D)
  7. FORTEO [Suspect]
     Dosage: 20 UG, DAILY (1/D)
     Route: 058
  8. SIMVASTATIN [Concomitant]
     Indication: BLOOD CHOLESTEROL
  9. CALCIUM W/MAGNESIUM [Concomitant]
  10. ALPRAZOLAM [Concomitant]
  11. LISINOPRIL/HYDROCHLOORTHIAZIDE [Concomitant]
     Indication: HYPERTENSION

REACTIONS (5)
  - STRESS FRACTURE [None]
  - PAIN IN EXTREMITY [None]
  - ACCIDENT [None]
  - FEMUR FRACTURE [None]
  - GAIT DISTURBANCE [None]
